FAERS Safety Report 4732516-2 (Version None)
Quarter: 2005Q3

REPORT INFORMATION
  Report Type: 
  Country: None (occurrence: None)
  Receive Date: 20050803
  Receipt Date: 20030319
  Transmission Date: 20060218
  Serious: Yes (Other)
  Sender: FDA-Public Use
  Company Number: JP-GLAXOSMITHKLINE-B0295428A

PATIENT
  Age: 34 Year
  Sex: Male
  Weight: 53.1 kg

DRUGS (11)
  1. RETROVIR [Suspect]
     Indication: HIV INFECTION
     Dosage: 400MG PER DAY
     Route: 048
     Dates: start: 19990326, end: 19990511
  2. BAKTAR [Suspect]
     Dosage: 2UNIT THREE TIMES PER WEEK
     Route: 048
     Dates: start: 19990323, end: 19990518
  3. VIRAMUNE [Suspect]
     Indication: HIV INFECTION
     Route: 048
     Dates: start: 19990326, end: 19990511
  4. VIDEX [Suspect]
     Indication: HIV INFECTION
     Dosage: 400MG PER DAY
     Route: 048
     Dates: start: 19990326, end: 19990511
  5. EPIVIR [Suspect]
     Indication: HIV INFECTION
     Dosage: 300MG PER DAY
     Route: 048
     Dates: start: 19990512, end: 20010416
  6. ZERIT [Suspect]
     Indication: HIV INFECTION
     Dosage: 80MG PER DAY
     Route: 048
     Dates: start: 19990512, end: 20010416
  7. INVIRASE [Suspect]
     Indication: HIV INFECTION
     Dosage: 800MG PER DAY
     Route: 048
     Dates: start: 19990512, end: 20010416
  8. NORVIR [Suspect]
     Indication: HIV INFECTION
     Dosage: 800MG PER DAY
     Route: 048
     Dates: start: 19990512, end: 20010416
  9. VIDEX EC [Suspect]
     Indication: HIV INFECTION
     Dosage: 400MG PER DAY
     Route: 048
     Dates: start: 20010417, end: 20040602
  10. LOPEMIN [Concomitant]
     Dosage: 2MG PER DAY
     Route: 048
     Dates: start: 19990323, end: 20010220
  11. PENTAMIDINE ISETHIONATE [Concomitant]
     Indication: INFECTION PROPHYLAXIS
     Dosage: 300MG PER DAY
     Route: 055
     Dates: start: 19990525, end: 19991005

REACTIONS (3)
  - ANAEMIA [None]
  - GAMMA-GLUTAMYLTRANSFERASE INCREASED [None]
  - LEUKOPENIA [None]
